FAERS Safety Report 11221026 (Version 1)
Quarter: 2015Q2

REPORT INFORMATION
  Report Type: Spontaneous
  Country: IT (occurrence: IT)
  Receive Date: 20150626
  Receipt Date: 20150626
  Transmission Date: 20150821
  Serious: Yes (Hospitalization)
  Sender: FDA-Public Use
  Company Number: IT-RANBAXY-2015RR-93376

PATIENT

DRUGS (2)
  1. FUROSEMIDE. [Concomitant]
     Active Substance: FUROSEMIDE
     Indication: DILATATION VENTRICULAR
     Dosage: 12 MG, UNK
     Route: 048
     Dates: start: 20140910, end: 20141113
  2. ENALAPRIL [Suspect]
     Active Substance: ENALAPRIL
     Indication: DILATATION VENTRICULAR
     Dosage: 12.5 MG, DAILY
     Route: 048
     Dates: start: 20141010, end: 20141113

REACTIONS (1)
  - Prerenal failure [Recovered/Resolved]

NARRATIVE: CASE EVENT DATE: 20141113
